FAERS Safety Report 4313780-0 (Version None)
Quarter: 2004Q1

REPORT INFORMATION
  Report Type: 
  Country: None (occurrence: None)
  Receive Date: 20040305
  Receipt Date: 20040225
  Transmission Date: 20041129
  Serious: Yes (Other)
  Sender: FDA-Public Use
  Company Number: K200400265

PATIENT
  Age: 48 Year
  Sex: Female
  Weight: 79.4 kg

DRUGS (2)
  1. LEVOXYL [Suspect]
     Indication: HYPOTHYROIDISM
     Dosage: 150 MCG, QD, ORAL
     Route: 048
     Dates: start: 19960101
  2. HORMONE [Concomitant]

REACTIONS (7)
  - OEDEMA MOUTH [None]
  - PHARYNGEAL OEDEMA [None]
  - RASH [None]
  - THROAT IRRITATION [None]
  - THROAT TIGHTNESS [None]
  - THYROID FUNCTION TEST ABNORMAL [None]
  - URTICARIA [None]
